FAERS Safety Report 5216308-6 (Version None)
Quarter: 2006Q4

REPORT INFORMATION
  Report Type: 
  Country: None (occurrence: None)
  Receive Date: 20061122
  Receipt Date: 20060925
  Transmission Date: 20070319
  Serious: Yes (Other)
  Sender: FDA-Public Use
  Company Number: 2006095973

PATIENT
  Age: 70 Year
  Sex: Female
  Weight: 72.5755 kg

DRUGS (5)
  1. LIPITOR [Suspect]
     Indication: BLOOD CHOLESTEROL
     Dosage: 40 MG (40 MG, 1 IN 1 D)
     Dates: start: 20041101
  2. LOVASTATIN [Suspect]
     Dosage: 40 MG (40 MG, 1 IN 1 D)
  3. LISINOPRIL [Concomitant]
  4. FOSAMAX [Concomitant]
  5. PREMARIN [Concomitant]

REACTIONS (5)
  - ASTHENIA [None]
  - LIMB DISCOMFORT [None]
  - LIVER FUNCTION TEST ABNORMAL [None]
  - MYALGIA [None]
  - PAIN IN EXTREMITY [None]
